FAERS Safety Report 23496798 (Version 19)
Quarter: 2025Q3

REPORT INFORMATION
  Report Type: Spontaneous
  Country: US (occurrence: US)
  Receive Date: 20240207
  Receipt Date: 20250912
  Transmission Date: 20251021
  Serious: No
  Sender: ROCHE
  Company Number: US-ROCHE-3471720

PATIENT
  Age: 19 Year
  Sex: Male
  Weight: 62.6 kg

DRUGS (5)
  1. XOLAIR PFS [Suspect]
     Active Substance: OMALIZUMAB
     Indication: Urticaria
     Dosage: STRENGTH: 150 MG/ML
     Route: 058
     Dates: start: 202301
  2. XOLAIR PFS [Suspect]
     Active Substance: OMALIZUMAB
     Dosage: STRENGTH :150MG/ML
     Route: 058
     Dates: start: 20230111
  3. XOLAIR PFS [Suspect]
     Active Substance: OMALIZUMAB
     Dosage: STRENGTH :150MG/ML
     Route: 058
     Dates: start: 202301
  4. XOLAIR PFS [Suspect]
     Active Substance: OMALIZUMAB
     Dosage: STRENGTH :150MG/ML
     Route: 058
     Dates: start: 202301
  5. TAKHZYRO [Concomitant]
     Active Substance: LANADELUMAB-FLYO

REACTIONS (13)
  - Ill-defined disorder [Unknown]
  - Laryngeal disorder [Unknown]
  - Abdominal distension [Unknown]
  - Swelling face [Unknown]
  - Urticaria [Unknown]
  - Gastrointestinal disorder [Unknown]
  - Weight increased [Unknown]
  - Lung disorder [Recovered/Resolved]
  - Mouth swelling [Unknown]
  - Swelling [Unknown]
  - Pharyngeal swelling [Unknown]
  - Oral disorder [Unknown]
  - Off label use [Unknown]

NARRATIVE: CASE EVENT DATE: 20231201
